FAERS Safety Report 7511967-7 (Version None)
Quarter: 2011Q2

REPORT INFORMATION
  Report Type: 
  Country: None (occurrence: None)
  Receive Date: 20110531
  Receipt Date: 20110517
  Transmission Date: 20111010
  Serious: Yes (Hospitalization, Other)
  Sender: FDA-Public Use
  Company Number: PHHY2011JP08333

PATIENT
  Sex: Male
  Weight: 52 kg

DRUGS (7)
  1. LASIX [Concomitant]
     Dosage: 10 MG, UNK
     Route: 048
     Dates: start: 20100118, end: 20100331
  2. EXJADE [Suspect]
     Dosage: 1000 MG, DAILY
     Route: 048
     Dates: start: 20100301, end: 20100331
  3. SULFAMETHOXAZOLE [Concomitant]
     Dosage: 1 DF, UNK
     Route: 048
     Dates: start: 20100118, end: 20100331
  4. HYDREA [Concomitant]
     Dosage: 1000 MG, UNK
     Route: 048
     Dates: start: 20100118, end: 20100331
  5. AMARYL [Concomitant]
     Dosage: 1 MG, UNK
     Route: 048
     Dates: start: 20100118, end: 20100331
  6. EXJADE [Suspect]
     Indication: MYELOPROLIFERATIVE DISORDER
     Dosage: 500 MG, DAILY
     Route: 048
     Dates: start: 20100118, end: 20100228
  7. RED BLOOD CELLS, CONCENTRATED [Concomitant]
     Dosage: 2 UNITS ONCE A WEEK

REACTIONS (4)
  - BONE MARROW FAILURE [None]
  - WHITE BLOOD CELL COUNT DECREASED [None]
  - SPLENOMEGALY [None]
  - PLATELET COUNT DECREASED [None]
